FAERS Safety Report 4855442-7 (Version None)
Quarter: 2005Q4

REPORT INFORMATION
  Report Type: 
  Country: None (occurrence: None)
  Receive Date: 20051125
  Receipt Date: 20051006
  Transmission Date: 20060501
  Serious: Yes (Other)
  Sender: FDA-Public Use
  Company Number: COV2-2005-00185

PATIENT
  Age: 33 Year
  Sex: Female
  Weight: 57.5161 kg

DRUGS (10)
  1. FOSRENOL [Suspect]
     Indication: HYPERPHOSPHATAEMIA
     Dosage: 1000 MG, 3X/DAY:TID, ORAL
     Route: 048
     Dates: start: 20050708, end: 20050730
  2. BENAZEPRIL (BENAZEPRIL) TABLET [Concomitant]
  3. CATAPRES /UNK/ (CLONIDINE) PATCH [Concomitant]
  4. HYDRALAZINE (HYDRALAZINE) TABLET [Concomitant]
  5. LEVOTHYROXINE (LEVOTHYROXINE) TABLET [Concomitant]
  6. LIPITOR /UNK/ (ATORVASTATIN) TABLET [Concomitant]
  7. METOPROLOL TARTRATE [Concomitant]
  8. NORVASC /DEN/ (AMLODIPINE BESILATE) TABLET [Concomitant]
  9. ROCALTROL (CALCITRIOL) CAPSULE [Concomitant]
  10. SENSIPAR (ALUMINIUM HYDROXIDE, MAGNESIUM HYDROXID) TABLET [Concomitant]

REACTIONS (3)
  - ABDOMINAL PAIN [None]
  - NAUSEA [None]
  - VOMITING [None]
